FAERS Safety Report 24983910 (Version 1)
Quarter: 2025Q1

REPORT INFORMATION
  Report Type: Spontaneous
  Country: LK (occurrence: LK)
  Receive Date: 20250219
  Receipt Date: 20250219
  Transmission Date: 20250409
  Serious: Yes (Death)
  Sender: RISING PHARMACEUTICALS
  Company Number: LK-RISINGPHARMA-LK-2025RISLIT00088

PATIENT
  Sex: Male

DRUGS (1)
  1. NIFEDIPINE [Suspect]
     Active Substance: NIFEDIPINE
     Indication: Product used for unknown indication
     Route: 065

REACTIONS (7)
  - Toxicity to various agents [Fatal]
  - Drug level increased [Fatal]
  - Trismus [Unknown]
  - Sinus tachycardia [Unknown]
  - Illness [Unknown]
  - Vomiting [Unknown]
  - Dizziness [Unknown]
